FAERS Safety Report 4667510-3 (Version None)
Quarter: 2005Q2

REPORT INFORMATION
  Report Type: 
  Country: None (occurrence: None)
  Receive Date: 20050520
  Receipt Date: 20041111
  Transmission Date: 20051028
  Serious: Yes (Other)
  Sender: FDA-Public Use
  Company Number: PHEH2004US12278

PATIENT
  Age: 55 Year
  Sex: Female

DRUGS (27)
  1. CORTEF [Concomitant]
     Dosage: 30MG QAM, 20MG QPM
     Dates: start: 20010531
  2. IMMUNE GLOBULIN INTRAVENOUS (HUMAN) [Concomitant]
     Dosage: QMO
     Dates: start: 20010201
  3. BACTRIM DS [Concomitant]
     Indication: INFECTION
     Dosage: BID 2 DAYS/WEEK
     Dates: start: 19991202
  4. CIPROFLOXACIN 'BIOCHEMIE' (NGX) [Concomitant]
     Indication: INFECTION
     Dosage: 500MG QD
     Dates: start: 20020214, end: 20031230
  5. CIPROFLOXACIN 'BIOCHEMIE' (NGX) [Concomitant]
     Dosage: 750 MG QD
     Dates: start: 20001230
  6. BIAXIN [Concomitant]
     Indication: INFECTION
     Dosage: 500 MG, QD
     Dates: start: 20031014
  7. DOXYCYCLINE [Concomitant]
     Indication: INFECTION
     Dosage: 100 MG, BID
     Dates: start: 20020225, end: 20031202
  8. DOXYCYCLINE [Concomitant]
     Dosage: 100 MG, BID
     Dates: start: 20040810
  9. SYNTHROID [Concomitant]
     Indication: HYPOTHYROIDISM
     Dosage: 0.03 MG, QD
     Dates: start: 19950205
  10. ACTIVELLA [Concomitant]
     Indication: OSTEOPOROSIS
     Dosage: 1MG/0.5MG QD
     Dates: start: 20031030
  11. ENALAPRIL MALEATE TABLETS USP (NGX) [Concomitant]
     Indication: HYPERTENSION
     Dates: start: 19990120
  12. ZOLOFT [Concomitant]
     Indication: DEPRESSION
     Dosage: 50 MG, QD
     Dates: start: 20030327
  13. PREVACID [Concomitant]
     Dosage: 30 MG, QD
     Dates: start: 19991230
  14. DECADRON                                /CAN/ [Concomitant]
     Dosage: 20MG UNK
  15. ANZEMET [Concomitant]
     Dosage: 100MG UNK
  16. DIFLUCAN [Concomitant]
     Dosage: 200 MG, QD
     Dates: start: 20030828, end: 20030901
  17. PREMPRO (PREMARIN;CYCRIN 14/14) [Concomitant]
     Indication: OSTEOPOROSIS
     Dosage: QD
     Dates: start: 20010221, end: 20030130
  18. CELEBREX [Concomitant]
     Indication: PAIN
     Dosage: 200 MG BID PRN
     Dates: start: 20020801
  19. DILANTIN /CAN/ [Concomitant]
     Dates: start: 20030828, end: 20030923
  20. PREDNISONE TABLETS USP (NGX) [Concomitant]
     Dosage: TAPER
     Dates: start: 19930401
  21. PROCRIT                            /00909301/ [Concomitant]
     Indication: ANAEMIA
     Dates: start: 20010511
  22. IG GAMMA [Concomitant]
     Dosage: 12G QMO
     Dates: start: 20011201
  23. CYTOXAN [Concomitant]
     Dosage: 1200MG QMO
     Dates: start: 20010405
  24. NEUPOGEN [Concomitant]
     Dosage: 300MG Q CYCLE
     Dates: start: 20010405, end: 20030922
  25. NEULASTA [Concomitant]
     Dosage: 6MG UNK
     Dates: start: 20031030
  26. ZOMETA [Suspect]
     Indication: OSTEOPOROSIS
     Dosage: 4MG QMO
     Dates: start: 20030501, end: 20040907
  27. ZOMETA [Suspect]
     Dosage: 4MG QOMO
     Dates: start: 20021003, end: 20030327

REACTIONS (2)
  - DENTAL OPERATION [None]
  - OSTEONECROSIS [None]
